FAERS Safety Report 8922001 (Version 2)
Quarter: 2013Q2

REPORT INFORMATION
  Report Type: Spontaneous
  Country: US (occurrence: None)
  Receive Date: 20120507
  Receipt Date: 20121113
  Transmission Date: 20140414
  Serious: Yes (Other)
  Sender: FDA-Public Use
  Company Number: PHEH2010US02726

PATIENT
  Age: 31 Year
  Sex: Male

DRUGS (1)
  1. TRILEPTAL [Suspect]

REACTIONS (2)
  - Complex partial seizures [None]
  - Drug ineffective [None]
